FAERS Safety Report 8724957 (Version 2)
Quarter: 2015Q2

REPORT INFORMATION
  Report Type: Report from Study
  Country: US (occurrence: US)
  Receive Date: 20120815
  Receipt Date: 20150403
  Transmission Date: 20150821
  Serious: Yes (Hospitalization)
  Sender: FDA-Public Use
  Company Number: US-ROCHE-1100836

PATIENT
  Sex: Female

DRUGS (8)
  1. CAPOTEN (UNITED STATES) [Concomitant]
     Route: 065
  2. THIORIDAZINE [Concomitant]
     Active Substance: THIORIDAZINE
     Route: 065
  3. LOPRESSOR [Concomitant]
     Active Substance: METOPROLOL TARTRATE
     Route: 042
  4. DOXYCYCLINE. [Concomitant]
     Active Substance: DOXYCYCLINE
     Route: 065
  5. HEPARIN [Concomitant]
     Active Substance: HEPARIN SODIUM
  6. ASA [Concomitant]
     Active Substance: ASPIRIN
     Route: 048
  7. ACTIVASE [Suspect]
     Active Substance: ALTEPLASE
     Indication: ACUTE MYOCARDIAL INFARCTION
     Route: 065
  8. MICRONASE [Concomitant]
     Active Substance: GLYBURIDE

REACTIONS (3)
  - Chest pain [Unknown]
  - Lip haemorrhage [Unknown]
  - Fatigue [Unknown]
